FAERS Safety Report 5169338-7 (Version None)
Quarter: 2006Q4

REPORT INFORMATION
  Report Type: 
  Country: None (occurrence: None)
  Receive Date: 20061127
  Receipt Date: 20061123
  Transmission Date: 20070319
  Serious: Yes (Life-Threatening)
  Sender: FDA-Public Use
  Company Number: GXKR2006GB07605

PATIENT
  Age: 62 Year
  Sex: Male
  Weight: 77 kg

DRUGS (10)
  1. CEFUROXIME [Suspect]
     Dosage: 750 MG, INTRAVENOUS
     Route: 042
     Dates: start: 20061108, end: 20061108
  2. ACETYSALICYLIC ACID [Concomitant]
  3. AZATHIOPRINE [Concomitant]
  4. CLEXANE (ENOXAPARIN SODIUM HEPARIN-FRACTION, SODIUM SALT) [Concomitant]
  5. CO-CODAMOL (CODEINE PHOSPHATE, PARACETAMOL) [Concomitant]
  6. FELODIPINE [Concomitant]
  7. FLUOXETINE [Concomitant]
  8. FOLIC ACID [Concomitant]
  9. LANSOPRAZOLE [Concomitant]
  10. TRAMADOL HCL [Concomitant]

REACTIONS (2)
  - ATRIOVENTRICULAR BLOCK SECOND DEGREE [None]
  - SINUS RHYTHM [None]
